FAERS Safety Report 7011667-6 (Version None)
Quarter: 2010Q3

REPORT INFORMATION
  Report Type: 
  Country: None (occurrence: None)
  Receive Date: 20100923
  Receipt Date: 20090407
  Transmission Date: 20110219
  Serious: No
  Sender: FDA-Public Use
  Company Number: US-WYE-H08863909

PATIENT
  Sex: Female
  Weight: 27.24 kg

DRUGS (5)
  1. PREMARIN [Suspect]
     Indication: GENITAL LABIAL ADHESIONS
     Dosage: UNKNOWN, ONCE DAILY
     Route: 067
     Dates: start: 20080401, end: 20090301
  2. RISPERDAL [Concomitant]
  3. SINGULAIR [Concomitant]
  4. PROZAC [Concomitant]
  5. ALBUTEROL [Concomitant]

REACTIONS (1)
  - RED BLOOD CELLS URINE [None]
